FAERS Safety Report 5871440-9 (Version None)
Quarter: 2008Q3

REPORT INFORMATION
  Report Type: 
  Country: None (occurrence: None)
  Receive Date: 20080905
  Receipt Date: 20080905
  Transmission Date: 20090109
  Serious: Yes (Hospitalization)
  Sender: FDA-Public Use
  Company Number: PHEH1997US04911

PATIENT
  Sex: Female

DRUGS (9)
  1. NEORAL [Suspect]
     Route: 048
     Dates: start: 19951002
  2. NEORAL [Suspect]
     Route: 048
     Dates: start: 19960105
  3. PHENOBARBITAL TAB [Concomitant]
  4. VASOTEC [Concomitant]
  5. CLONIDINE [Concomitant]
  6. PEPCID [Concomitant]
  7. SANDOSTATIN [Concomitant]
  8. ATIVAN [Concomitant]
  9. PREDNISONE [Concomitant]

REACTIONS (2)
  - ABDOMINAL PAIN [None]
  - TRANSPLANT REJECTION [None]
